FAERS Safety Report 22064322 (Version 2)
Quarter: 2023Q2

REPORT INFORMATION
  Report Type: Spontaneous
  Country: US (occurrence: US)
  Receive Date: 20230306
  Receipt Date: 20230405
  Transmission Date: 20230721
  Serious: Yes (Other)
  Sender: FDA-Public Use
  Company Number: US-BAYER-2023A025580

PATIENT
  Age: 34 Year
  Sex: Female
  Weight: 77.551 kg

DRUGS (1)
  1. MIRENA [Suspect]
     Active Substance: LEVONORGESTREL
     Indication: Contraception
     Dosage: 20?G/DAY
     Route: 015
     Dates: start: 20220608, end: 20230223

REACTIONS (5)
  - Pregnancy with contraceptive device [Recovering/Resolving]
  - Embedded device [Recovering/Resolving]
  - Drug ineffective [None]
  - Abdominal distension [Recovering/Resolving]
  - Fatigue [Recovering/Resolving]

NARRATIVE: CASE EVENT DATE: 20230216
